FAERS Safety Report 6989253-3 (Version None)
Quarter: 2010Q3

REPORT INFORMATION
  Report Type: 
  Country: None (occurrence: None)
  Receive Date: 20100916
  Receipt Date: 20091020
  Transmission Date: 20110219
  Serious: Yes (Death, Other)
  Sender: FDA-Public Use
  Company Number: SE-PFIZER INC-2009285564

PATIENT
  Sex: Male

DRUGS (11)
  1. LYRICA [Suspect]
     Indication: PSYCHOTIC DISORDER
     Dosage: 150 MG/24H
     Route: 048
     Dates: start: 20090225, end: 20090701
  2. ACETYLCYSTEINE [Concomitant]
     Dosage: 200 MG, UNK
  3. MIRTAZAPINE [Concomitant]
     Dosage: 45 MG, UNK
     Dates: start: 20090201
  4. ACETAMINOPHEN [Concomitant]
     Dosage: 500 MG, UNK
  5. MICROLAX [Concomitant]
     Dosage: UNK
  6. DIAZEPAM [Concomitant]
     Dosage: 5 MG, UNK
  7. LACTULOSE [Concomitant]
     Dosage: UNK
  8. OXASCAND [Concomitant]
     Dosage: 10 MG, UNK
  9. ASPIRIN [Concomitant]
     Dosage: 75 MG, UNK
  10. ALVEDON [Concomitant]
     Dosage: 1 G, UNK
  11. CITALOPRAM [Concomitant]
     Dosage: 10 MG, UNK

REACTIONS (1)
  - CEREBRAL INFARCTION [None]
